FAERS Safety Report 7031664-4 (Version None)
Quarter: 2010Q4

REPORT INFORMATION
  Report Type: 
  Country: None (occurrence: None)
  Receive Date: 20101006
  Receipt Date: 20101006
  Transmission Date: 20110411
  Serious: Yes (Hospitalization)
  Sender: FDA-Public Use
  Company Number: None

PATIENT
  Age: 54 Year
  Sex: Female
  Weight: 77.1115 kg

DRUGS (1)
  1. ZOLEDRONIC ACID (RECLAST) [Suspect]
     Indication: OSTEOPOROSIS
     Dosage: 5 MG ONCE A YEAR IV DRIP
     Route: 041
     Dates: start: 20100920, end: 20100920

REACTIONS (5)
  - CONJUNCTIVITIS [None]
  - EYE PAIN [None]
  - IRITIS [None]
  - OCULAR HYPERAEMIA [None]
  - SCLERITIS [None]
